FAERS Safety Report 19589899 (Version 1)
Quarter: 2021Q3

REPORT INFORMATION
  Report Type: Spontaneous
  Country: PT (occurrence: PT)
  Receive Date: 20210721
  Receipt Date: 20210721
  Transmission Date: 20211014
  Serious: Yes (Life-Threatening, Hospitalization)
  Sender: FDA-Public Use
  Company Number: PT-PFIZER INC-2021850792

PATIENT
  Age: 46 Year
  Sex: Female

DRUGS (9)
  1. BROMAZEPAM [Concomitant]
     Active Substance: BROMAZEPAM
     Dosage: 3 MG, 1X/DAY
     Route: 048
  2. ARANKELLE [Concomitant]
     Dosage: 1 MG, 1X/DAY
     Route: 048
  3. SALAZOPIRINA EN [Suspect]
     Active Substance: SULFASALAZINE
     Indication: SPONDYLOARTHROPATHY
     Dosage: 2000 MG, 1X/DAY (2+0+2)
     Route: 048
     Dates: start: 20210525, end: 20210619
  4. DIAZEPAM. [Concomitant]
     Active Substance: DIAZEPAM
     Dosage: 5 MG, 1X/DAY
     Route: 048
  5. EUTIROX [Concomitant]
     Active Substance: LEVOTHYROXINE SODIUM
     Dosage: 25 UG, 1X/DAY
     Route: 048
  6. FLUOXETINE [Concomitant]
     Active Substance: FLUOXETINE HYDROCHLORIDE
     Dosage: 20 MG, 1X/DAY
     Route: 048
  7. SIMVASTATIN. [Concomitant]
     Active Substance: SIMVASTATIN
     Dosage: 20 MG, 1X/DAY
     Route: 048
  8. BETAHISTINE [Concomitant]
     Active Substance: BETAHISTINE
     Dosage: 24 MG, 1X/DAY
     Route: 048
  9. FLEXIBAN [Concomitant]
     Active Substance: CYCLOBENZAPRINE
     Dosage: 10 MG, 1X/DAY
     Route: 048

REACTIONS (3)
  - Rash maculo-papular [Recovered/Resolved]
  - Pancytopenia [Recovered/Resolved]
  - Pyrexia [Recovered/Resolved]

NARRATIVE: CASE EVENT DATE: 20210618
